FAERS Safety Report 15976749 (Version 1)
Quarter: 2019Q1

REPORT INFORMATION
  Report Type: Spontaneous
  Country: US (occurrence: US)
  Receive Date: 20190218
  Receipt Date: 20190218
  Transmission Date: 20190418
  Serious: Yes (Hospitalization)
  Sender: FDA-Public Use
  Company Number: US-NORTHSTAR HEALTHCARE HOLDINGS-US-2019NSR000014

PATIENT
  Age: 47 Year
  Sex: Male

DRUGS (1)
  1. BACLOFEN. [Suspect]
     Active Substance: BACLOFEN
     Indication: BLADDER SPASM
     Dosage: 10 MG, TID

REACTIONS (2)
  - Withdrawal syndrome [Recovered/Resolved]
  - Psychotic disorder [Recovered/Resolved]
